FAERS Safety Report 10243087 (Version 1)
Quarter: 2014Q2

REPORT INFORMATION
  Report Type: Spontaneous
  Country: US (occurrence: None)
  Receive Date: 20140616
  Receipt Date: 20140616
  Transmission Date: 20141212
  Serious: No
  Sender: FDA-Public Use
  Company Number: None

PATIENT
  Age: 59 Year
  Sex: Female
  Weight: 130 kg

DRUGS (16)
  1. HUMATE-P [Suspect]
     Indication: VON WILLEBRAND^S DISEASE
     Dosage: 993 RCOF UNITS EVERY 3RD DAY INTRAVENOUS
     Route: 042
     Dates: start: 20100601, end: 20140611
  2. HUMATE-P [Suspect]
     Indication: HAEMORRHAGE PROPHYLAXIS
     Dosage: 993 RCOF UNITS EVERY 3RD DAY INTRAVENOUS
     Route: 042
     Dates: start: 20100601, end: 20140611
  3. ANTIHEMOPHILIC FACTOR-VWF [Concomitant]
  4. NIFEDEIPINE CC (ADALAT CC) [Concomitant]
  5. ALBUTEROL (PROVENTIL) [Concomitant]
  6. FLUTICASONE-SALMETEROL (ADVAIR DISKUS) [Concomitant]
  7. MONTELUKAST(SINGULAIR) [Concomitant]
  8. TOPIRMATE(TOPAMAX) [Concomitant]
  9. AZELASTINE(ASTELIN) [Concomitant]
  10. CYMBALTA [Concomitant]
  11. OMEPRAZOLE(PRILOSEC) [Concomitant]
  12. INSULIN ASPART(NOVOLOG) [Concomitant]
  13. METFORMIN(GLUCOPHAGE) [Concomitant]
  14. ALBUTEROL HFA (VENTOLIN HFA;PROVENTIL HFA) [Concomitant]
  15. EPINEPHRINE(EPIPEN) [Concomitant]
  16. OLMESARTAN-HYDROCHLOROTHIAZIDE(BENICAR HCT) [Concomitant]

REACTIONS (2)
  - Asthma [None]
  - Rash [None]
